FAERS Safety Report 9006092 (Version 1)
Quarter: 2013Q1

REPORT INFORMATION
  Report Type: Spontaneous
  Country: US (occurrence: US)
  Receive Date: 20130109
  Receipt Date: 20130109
  Transmission Date: 20140127
  Serious: Yes (Death)
  Sender: FDA-Public Use
  Company Number: CHPA2013US000667

PATIENT
  Sex: Female

DRUGS (1)
  1. 4 WAY UNKNOWN [Suspect]
     Dosage: UNK, UNK
     Route: 045

REACTIONS (1)
  - Brain neoplasm [Fatal]
